FAERS Safety Report 15599521 (Version 1)
Quarter: 2018Q4

REPORT INFORMATION
  Report Type: Spontaneous
  Country: GB (occurrence: GB)
  Receive Date: 20181108
  Receipt Date: 20181108
  Transmission Date: 20190205
  Serious: Yes (Hospitalization)
  Sender: FDA-Public Use
  Company Number: GB-MYLANLABS-2018M1083964

PATIENT
  Age: 29 Year
  Sex: Male

DRUGS (15)
  1. MACROGOL [Concomitant]
     Active Substance: POLYETHYLENE GLYCOLS
     Dosage: 111.2 G, QD
     Route: 048
  2. PIRENZEPINE [Concomitant]
     Active Substance: PIRENZEPINE
     Dosage: 150 MG, QD
  3. PARACETAMOL [Concomitant]
     Active Substance: ACETAMINOPHEN
     Dosage: 4 G, QD
  4. DIAZEPAM. [Concomitant]
     Active Substance: DIAZEPAM
     Dosage: 8 MG, AM
  5. BACLOFEN. [Concomitant]
     Active Substance: BACLOFEN
     Dosage: 75 MG, QD
  6. GABAPENTIN. [Concomitant]
     Active Substance: GABAPENTIN
     Dosage: 250 MG, PM
  7. OMEPRAZOLE. [Concomitant]
     Active Substance: OMEPRAZOLE
     Dosage: 40 MG, AM
  8. DIAZEPAM. [Concomitant]
     Active Substance: DIAZEPAM
     Dosage: 10 MG, PM
  9. CLOZAPINE. [Suspect]
     Active Substance: CLOZAPINE
     Indication: PRODUCT USED FOR UNKNOWN INDICATION
     Dosage: 300 MG, QD
  10. PROCYCLIDINE [Concomitant]
     Active Substance: PROCYCLIDINE
     Dosage: 20 MG, QD
  11. TRAMADOL. [Concomitant]
     Active Substance: TRAMADOL
     Dosage: 400 MG, QD
  12. GABAPENTIN. [Concomitant]
     Active Substance: GABAPENTIN
     Dosage: 500 MG, AM
  13. DIAZEPAM. [Concomitant]
     Active Substance: DIAZEPAM
     Dosage: 9 MG, PM
  14. DIAZEPAM. [Concomitant]
     Active Substance: DIAZEPAM
     Dosage: 14 MG, HS
  15. GABAPENTIN. [Concomitant]
     Active Substance: GABAPENTIN
     Dosage: 500 MG, HS

REACTIONS (2)
  - Somnolence [Unknown]
  - Unresponsive to stimuli [Unknown]
